FAERS Safety Report 9629796 (Version 2)
Quarter: 2013Q4

REPORT INFORMATION
  Report Type: Spontaneous
  Country: FR (occurrence: FR)
  Receive Date: 20131017
  Receipt Date: 20131031
  Transmission Date: 20140711
  Serious: Yes (Other)
  Sender: FDA-Public Use
  Company Number: FR-ABBVIE-13P-056-1156364-00

PATIENT
  Age: 16 Year
  Sex: Male
  Weight: 51 kg

DRUGS (2)
  1. HUMIRA [Suspect]
     Indication: ANKYLOSING SPONDYLITIS
     Route: 058
     Dates: start: 20130428, end: 20131001
  2. RUPATADINE FUMARATE (WYSTAMN) [Concomitant]
     Indication: HYPERSENSITIVITY
     Route: 048
     Dates: start: 20130618

REACTIONS (5)
  - Depression [Recovered/Resolved]
  - Depression [Unknown]
  - Self injurious behaviour [Unknown]
  - Hand fracture [Unknown]
  - Depression [Not Recovered/Not Resolved]
